FAERS Safety Report 19264856 (Version 5)
Quarter: 2022Q1

REPORT INFORMATION
  Report Type: Spontaneous
  Country: ES (occurrence: ES)
  Receive Date: 20210517
  Receipt Date: 20220118
  Transmission Date: 20220424
  Serious: Yes (Other)
  Sender: FDA-Public Use
  Company Number: ES-ACTAVIS-0296

PATIENT
  Age: 83 Year
  Sex: Male

DRUGS (5)
  1. LOSARTAN [Interacting]
     Active Substance: LOSARTAN
     Indication: Hypertension
     Dosage: 100 MILLIGRAM, ONCE A DAY(100 MG, QAM)
     Route: 065
     Dates: start: 2011
  2. ACENOCOUMAROL [Interacting]
     Active Substance: ACENOCOUMAROL
     Indication: Atrial fibrillation
     Dosage: UNKNOWN, IN THE AFTERNOON
     Route: 048
     Dates: start: 2011, end: 20120517
  3. ACENOCOUMAROL [Interacting]
     Active Substance: ACENOCOUMAROL
     Indication: Anticoagulant therapy
     Dosage: UNK IN THE AFTERNOON
     Route: 065
  4. HYDROCHLOROTHIAZIDE\LOSARTAN [Interacting]
     Active Substance: HYDROCHLOROTHIAZIDE\LOSARTAN
     Indication: Hypertension
     Dosage: 100 MG, LOSARTAN + 25 MG HYDROCHLOROTHIAZIDE IN THE MORNING
     Route: 048
  5. HYDROCHLOROTHIAZIDE [Concomitant]
     Active Substance: HYDROCHLOROTHIAZIDE
     Indication: Hypertension
     Dosage: 25 MILLIGRAM, ONCE A DAY (100 MG, IN THE MORNING)
     Route: 048

REACTIONS (4)
  - International normalised ratio fluctuation [Unknown]
  - Blood pressure inadequately controlled [Recovered/Resolved]
  - Blood pressure systolic abnormal [Recovered/Resolved]
  - Drug interaction [Recovered/Resolved]

NARRATIVE: CASE EVENT DATE: 20120101
